FAERS Safety Report 8882256 (Version 1)
Quarter: 2012Q4

REPORT INFORMATION
  Report Type: Report from Study
  Country: US (occurrence: US)
  Receive Date: 20121102
  Receipt Date: 20121102
  Transmission Date: 20130627
  Serious: Yes (Hospitalization)
  Sender: FDA-Public Use
  Company Number: US-ABBOTT-12P-163-1001086-00

PATIENT
  Age: 48 Year
  Sex: Female

DRUGS (8)
  1. HUMIRA [Suspect]
     Indication: COLITIS ULCERATIVE
     Dates: start: 20120720
  2. LEVOTHYROXINE [Concomitant]
     Indication: HYPOTHYROIDISM
  3. CHOLECALCIFEROL [Concomitant]
     Indication: PRODUCT USED FOR UNKNOWN INDICATION
     Dosage: With VIT D
  4. VITAMIN D [Concomitant]
     Indication: PRODUCT USED FOR UNKNOWN INDICATION
     Dosage: 5000 units a week
  5. ESTRADIOL [Concomitant]
     Indication: HORMONE REPLACEMENT THERAPY
     Dosage: Daily
  6. ASACOL [Concomitant]
     Indication: COLITIS ULCERATIVE
     Dosage: 400mg 6 pills in the morning, 6 pills in evening
  7. IMITREX [Concomitant]
     Indication: MIGRAINE
  8. TRAZODONE [Concomitant]
     Indication: INSOMNIA
     Dosage: 50mg as needed one third of a 50mg tablet

REACTIONS (14)
  - Rhinorrhoea [Recovering/Resolving]
  - Dizziness [Recovering/Resolving]
  - Swollen tongue [Recovering/Resolving]
  - Feeling abnormal [Recovering/Resolving]
  - Migraine [Recovering/Resolving]
  - Chest pain [Recovering/Resolving]
  - Erythema [Recovering/Resolving]
  - Hot flush [Recovering/Resolving]
  - Erythema [Recovering/Resolving]
  - Hot flush [Recovering/Resolving]
  - Feeling abnormal [Unknown]
  - Pain [Unknown]
  - Arthralgia [Unknown]
  - Frequent bowel movements [Unknown]
